FAERS Safety Report 18002845 (Version 2)
Quarter: 2020Q3

REPORT INFORMATION
  Report Type: Spontaneous
  Country: US (occurrence: US)
  Receive Date: 20200710
  Receipt Date: 20200716
  Transmission Date: 20201103
  Serious: No
  Sender: FDA-Public Use
  Company Number: US-AMGEN INC.-USASP2020106582

PATIENT
  Age: 30 Year
  Sex: Female

DRUGS (2)
  1. AIMOVIG [Suspect]
     Active Substance: ERENUMAB-AOOE
     Indication: HEADACHE
     Dosage: 70 MILLIGRAM
     Route: 065
     Dates: start: 20200605
  2. IMITREX [Concomitant]
     Active Substance: SUMATRIPTAN SUCCINATE
     Indication: HEADACHE
     Dosage: UNK

REACTIONS (3)
  - Therapeutic response shortened [Unknown]
  - Device use error [Unknown]
  - Product storage error [Unknown]

NARRATIVE: CASE EVENT DATE: 2020
